FAERS Safety Report 9938241 (Version 1)
Quarter: 2014Q1

REPORT INFORMATION
  Report Type: Report from Study
  Country: US (occurrence: US)
  Receive Date: 20140303
  Receipt Date: 20140303
  Transmission Date: 20141002
  Serious: No
  Sender: FDA-Public Use
  Company Number: US-ABBVIE-13P-163-1031249-00

PATIENT
  Age: 53 Year
  Sex: 0

DRUGS (3)
  1. HUMIRA [Suspect]
     Indication: CROHN^S DISEASE
     Route: 058
     Dates: start: 201212, end: 201212
  2. HUMIRA [Suspect]
     Route: 058
     Dates: start: 201301, end: 201301
  3. HUMIRA [Suspect]
     Route: 058
     Dates: start: 201301, end: 201301

REACTIONS (2)
  - Medication error [Recovered/Resolved]
  - Inappropriate schedule of drug administration [Recovered/Resolved]
